FAERS Safety Report 9621170 (Version 1)
Quarter: 2013Q4

REPORT INFORMATION
  Report Type: Spontaneous
  Country: US (occurrence: US)
  Receive Date: 20131015
  Receipt Date: 20131015
  Transmission Date: 20140711
  Serious: No
  Sender: FDA-Public Use
  Company Number: US-BAYER-2013-122835

PATIENT
  Sex: Female

DRUGS (1)
  1. GADAVIST [Suspect]
     Indication: NUCLEAR MAGNETIC RESONANCE IMAGING
     Dosage: HAND INJECTED WITH A 22 GAUGE NEEDLE, ONCE
     Dates: start: 20131009, end: 20131009

REACTIONS (1)
  - Vomiting [Recovered/Resolved]
